FAERS Safety Report 24623628 (Version 1)
Quarter: 2024Q4

REPORT INFORMATION
  Report Type: Spontaneous
  Country: US (occurrence: US)
  Receive Date: 20241115
  Receipt Date: 20241115
  Transmission Date: 20250115
  Serious: No
  Sender: AMNEAL
  Company Number: US-AMNEAL PHARMACEUTICALS-2024-AMRX-01705

PATIENT
  Sex: Female

DRUGS (3)
  1. AMPHETAMINE SULFATE [Suspect]
     Active Substance: AMPHETAMINE SULFATE
     Indication: Attention deficit hyperactivity disorder
     Dosage: 10 MILLIGRAM, 2 /DAY IN AFTERNOON
     Route: 065
     Dates: start: 2023, end: 2023
  2. AMPHETAMINE SULFATE [Suspect]
     Active Substance: AMPHETAMINE SULFATE
     Indication: Hypersomnia
  3. BUPROPION HYDROCHLORIDE [Concomitant]
     Active Substance: BUPROPION HYDROCHLORIDE
     Indication: Product used for unknown indication
     Dosage: UNK
     Route: 065

REACTIONS (6)
  - Condition aggravated [Recovering/Resolving]
  - Brain fog [Recovering/Resolving]
  - Somnolence [Recovered/Resolved]
  - Disorientation [Recovering/Resolving]
  - Fatigue [Recovered/Resolved]
  - Drug ineffective [Unknown]
